FAERS Safety Report 4987121-X (Version None)
Quarter: 2006Q2

REPORT INFORMATION
  Report Type: 
  Country: None (occurrence: None)
  Receive Date: 20060501
  Receipt Date: 20060419
  Transmission Date: 20061013
  Serious: Yes (Other)
  Sender: FDA-Public Use
  Company Number: 2006AP01814

PATIENT
  Age: 11437 Day
  Sex: Male
  Weight: 90 kg

DRUGS (4)
  1. SEROQUEL [Suspect]
     Dosage: DOSE INCREASED TO 100 MG
     Route: 048
     Dates: end: 20051114
  2. SEROQUEL [Suspect]
     Route: 048
     Dates: start: 20051115, end: 20060202
  3. TEGRETOL [Concomitant]
     Indication: AFFECTIVE DISORDER
     Route: 048
     Dates: start: 20060114
  4. LITHIUM CARBONATE [Concomitant]
     Indication: AFFECTIVE DISORDER
     Dosage: LONG TERM

REACTIONS (3)
  - RASH [None]
  - SWELLING FACE [None]
  - URTICARIA [None]
